FAERS Safety Report 7413316-1 (Version None)
Quarter: 2011Q2

REPORT INFORMATION
  Report Type: 
  Country: None (occurrence: None)
  Receive Date: 20110413
  Receipt Date: 20110331
  Transmission Date: 20111010
  Serious: Yes (Hospitalization, Other)
  Sender: FDA-Public Use
  Company Number: PHEH2005US10676

PATIENT

DRUGS (87)
  1. ZOMETA [Suspect]
     Indication: HYPERCALCAEMIA
     Dosage: 4 MG, UNK
     Dates: start: 20011226, end: 20041208
  2. FEMARA [Concomitant]
     Dosage: 2.5MG QD
     Route: 048
     Dates: start: 20020123
  3. ALLEGRA [Concomitant]
  4. AMPICILLIN [Concomitant]
  5. CHLORHEXIDINE GLUCONATE [Concomitant]
     Dosage: UNK
  6. AVELOX [Concomitant]
  7. LISINOPRIL [Concomitant]
  8. HERCEPTIN [Concomitant]
     Dosage: Q3WK
     Dates: start: 20020626
  9. INNOHEP [Concomitant]
     Dosage: 13,000 UNK
     Dates: start: 20030820, end: 20030922
  10. LEXAPRO [Concomitant]
  11. LORTAB [Concomitant]
     Dosage: UNK
  12. PROCHLORPERAZINE TAB [Concomitant]
     Dosage: 10 MG
  13. HYCODAN                                 /CAN/ [Concomitant]
  14. AREDIA [Suspect]
     Indication: HYPERCALCAEMIA
     Dosage: 90 MG, QMO
     Dates: start: 20010315, end: 20011226
  15. GEMZAR [Concomitant]
     Dates: start: 20010827, end: 20010829
  16. IBUPROFEN [Concomitant]
     Indication: ARTHRITIS
  17. OSCAL [Concomitant]
  18. FASLODEX [Concomitant]
     Dosage: UNK
     Dates: start: 20070501
  19. GABAPENTIN [Concomitant]
  20. COMPRO [Concomitant]
     Dosage: 25 MG
  21. WARFARIN SODIUM [Concomitant]
     Dosage: UNK
  22. TUSSIONEX [Concomitant]
     Dosage: UNK
  23. FORADIL [Concomitant]
     Dosage: UNK
  24. CIPROFLOXACIN HCL [Concomitant]
     Dosage: 500 MG
  25. HUMIBID [Concomitant]
  26. ZOCOR [Concomitant]
  27. CODEINE W/GUAIFENESIN [Concomitant]
  28. IMITREX ^CERENEX^ [Concomitant]
  29. NORTRIPTYLINE HCL [Concomitant]
  30. DEXAMETHASONE [Concomitant]
  31. LIPITOR [Concomitant]
     Dosage: 10MG QD
  32. CELEBREX [Concomitant]
     Indication: ARTHRITIS
     Dosage: 200MG BID
     Route: 048
     Dates: start: 20010329
  33. DICLOFENAC POTASSIUM [Concomitant]
  34. OXYCODONE HCL AND ACETAMINOPHEN [Concomitant]
     Dosage: 5-325 MG
  35. ASMANEX TWISTHALER [Concomitant]
     Dosage: UNK
  36. DOXYCYCLINE [Concomitant]
     Dosage: UNK
  37. METHYLPREDNISOLONE [Concomitant]
     Dosage: UNK
  38. SIMVASTATIN [Concomitant]
  39. FUROSEMIDE [Concomitant]
  40. PSEUDOEPHEDRINE [Concomitant]
  41. NITROSTAT [Concomitant]
     Dosage: 0.4 MG
     Route: 060
  42. ZOMETA [Suspect]
     Dates: start: 20050401, end: 20050825
  43. ANZEMET [Concomitant]
  44. AMBIEN [Concomitant]
     Indication: SLEEP DISORDER
     Dosage: 10MG QHS
     Dates: start: 20020123
  45. NEXIUM [Concomitant]
  46. VALIUM [Concomitant]
  47. ALBUTEROL [Concomitant]
     Dosage: 909 MCG
  48. SPIRIVA [Concomitant]
     Dosage: 18 MCG
  49. METOPROLOL TARTRATE [Concomitant]
  50. CEPHALEXIN [Concomitant]
     Dosage: 500 MG, BID
     Route: 048
  51. AREDIA [Suspect]
     Dates: start: 20030201, end: 20050101
  52. TAXOTERE [Concomitant]
     Dosage: UNK, UNK
     Dates: start: 20010328, end: 20010703
  53. ATIVAN [Concomitant]
     Indication: NAUSEA
     Dosage: 1MG Q8H PRN
     Dates: start: 20020123
  54. PEPCID [Concomitant]
  55. CRESTOR [Concomitant]
  56. TRILEPTAL [Concomitant]
     Dosage: 300 MG, UNK
     Route: 048
  57. EMLA [Concomitant]
     Dosage: UNK
  58. PRILOSEC [Concomitant]
  59. ZANTAC [Concomitant]
  60. TOPAMAX [Concomitant]
  61. ACETYLSALICYLIC ACID SRT [Concomitant]
     Dosage: 81 MG, QD
  62. PROCRIT [Concomitant]
  63. LOVENOX [Concomitant]
     Dates: start: 20030101
  64. PAXIL [Concomitant]
     Indication: DEPRESSION
     Dosage: 40MG QD
     Route: 048
     Dates: start: 20020123
  65. COUMADIN [Concomitant]
     Dosage: 1MG QD
     Route: 048
  66. QUININE SULFATE [Concomitant]
     Indication: MUSCLE SPASMS
     Dates: start: 20030402
  67. ANALPRAM HC [Concomitant]
  68. DIAZEPAM [Concomitant]
     Dosage: 2 MG, UNK
     Route: 048
  69. PROPOXYPHENE NAPSYLATE W/ ACETAMINOPHEN [Concomitant]
     Dosage: UNK
  70. ZOLPIDEM [Concomitant]
  71. GLUCOPHAGE [Concomitant]
  72. NAVELBINE [Concomitant]
     Dosage: UNK, UNK
     Dates: start: 20010703, end: 20020910
  73. LEVAQUIN [Concomitant]
  74. MARINOL [Concomitant]
     Indication: NAUSEA
     Dosage: 5MG UNK
  75. PERCOCET [Concomitant]
  76. NEURONTIN [Concomitant]
     Indication: MUSCLE SPASMS
     Dosage: 1200MG QD
     Dates: start: 20030801
  77. CYMBALTA [Concomitant]
  78. TYLENOL PM [Concomitant]
  79. CYCLOBENZAPRINE [Concomitant]
     Dosage: 10 MG
  80. FLONASE [Concomitant]
     Dosage: UNK
     Route: 045
  81. ZITHROMAX [Concomitant]
     Dosage: 250 MG
  82. CLARITIN-D [Concomitant]
     Dosage: UNK
  83. HYDROCODONE BITARTRATE AND ACETAMINOPHEN [Concomitant]
  84. CEFADROXIL [Concomitant]
  85. CLARITIN [Concomitant]
  86. PRISTIQ [Concomitant]
  87. ZIAC [Concomitant]

REACTIONS (93)
  - DROP ATTACKS [None]
  - THYROID NEOPLASM [None]
  - HYPERTENSION [None]
  - GINGIVITIS [None]
  - TOOTH ABSCESS [None]
  - PAIN [None]
  - DEAFNESS NEUROSENSORY [None]
  - COORDINATION ABNORMAL [None]
  - RHINITIS [None]
  - BLOOD UREA INCREASED [None]
  - RASH [None]
  - WEIGHT INCREASED [None]
  - CARPAL TUNNEL SYNDROME [None]
  - SYNCOPE [None]
  - METATARSALGIA [None]
  - OSTEOMYELITIS [None]
  - TOOTH DISORDER [None]
  - RHONCHI [None]
  - NEUROPATHY PERIPHERAL [None]
  - MUSCULAR WEAKNESS [None]
  - ANAEMIA [None]
  - POLYURIA [None]
  - OSTEOARTHRITIS [None]
  - CAROTID ARTERY DISEASE [None]
  - FISTULA [None]
  - GINGIVAL ULCERATION [None]
  - BONE DENSITY DECREASED [None]
  - MITRAL VALVE INCOMPETENCE [None]
  - CARDIOMYOPATHY [None]
  - LOOSE TOOTH [None]
  - LOBAR PNEUMONIA [None]
  - PULMONARY RADIATION INJURY [None]
  - COUGH [None]
  - BLOOD CALCIUM DECREASED [None]
  - DYSPHEMIA [None]
  - TELANGIECTASIA [None]
  - DYSURIA [None]
  - HYPERLIPIDAEMIA [None]
  - CEREBRAL ISCHAEMIA [None]
  - CELLULITIS [None]
  - IMPAIRED HEALING [None]
  - FATIGUE [None]
  - HYPERCALCAEMIA [None]
  - VISUAL IMPAIRMENT [None]
  - MUSCLE SPASMS [None]
  - PHARYNGEAL OEDEMA [None]
  - DIVERTICULUM [None]
  - RENAL FAILURE ACUTE [None]
  - PERIARTHRITIS [None]
  - PANCYTOPENIA [None]
  - CHRONIC OBSTRUCTIVE PULMONARY DISEASE [None]
  - PLEURAL EFFUSION [None]
  - HEARING AID USER [None]
  - DEVICE OCCLUSION [None]
  - BLOOD CREATININE INCREASED [None]
  - DIZZINESS [None]
  - AORTIC ANEURYSM [None]
  - MENTAL STATUS CHANGES [None]
  - NAUSEA [None]
  - BACK PAIN [None]
  - RESTLESS LEGS SYNDROME [None]
  - CEREBRAL ARTERIOSCLEROSIS [None]
  - CEREBROVASCULAR ACCIDENT [None]
  - SWELLING FACE [None]
  - DEEP VEIN THROMBOSIS [None]
  - PLEURITIC PAIN [None]
  - ERYTHEMA [None]
  - MUSCLE TWITCHING [None]
  - STRESS [None]
  - EXOSTOSIS [None]
  - MORTON'S NEUROMA [None]
  - DIABETES MELLITUS [None]
  - EXCESSIVE GRANULATION TISSUE [None]
  - BONE DISORDER [None]
  - NEOPLASM MALIGNANT [None]
  - MASTICATION DISORDER [None]
  - DYSPNOEA [None]
  - PAIN IN EXTREMITY [None]
  - CONFUSIONAL STATE [None]
  - MUSCULOSKELETAL CHEST PAIN [None]
  - SLEEP APNOEA SYNDROME [None]
  - DEHYDRATION [None]
  - INTERVERTEBRAL DISC DEGENERATION [None]
  - PULMONARY EMBOLISM [None]
  - OSTEONECROSIS OF JAW [None]
  - PRIMARY SEQUESTRUM [None]
  - TOOTHACHE [None]
  - ANEURYSM [None]
  - HEADACHE [None]
  - MEMORY IMPAIRMENT [None]
  - INSOMNIA [None]
  - STAPHYLOCOCCAL INFECTION [None]
  - PLANTAR FASCIITIS [None]
